FAERS Safety Report 14656922 (Version 1)
Quarter: 2018Q1

REPORT INFORMATION
  Report Type: Spontaneous
  Country: US (occurrence: US)
  Receive Date: 20180319
  Receipt Date: 20180319
  Transmission Date: 20180509
  Serious: No
  Sender: FDA-Public Use
  Company Number: US-SA-2017SA155147

PATIENT
  Age: 63 Year
  Sex: Male

DRUGS (4)
  1. NASACORT ALLERGY 24HR [Suspect]
     Active Substance: TRIAMCINOLONE ACETONIDE
     Indication: MULTIPLE ALLERGIES
     Dosage: DOSE:2 UNIT(S)
     Route: 045
     Dates: end: 20170816
  2. NASACORT ALLERGY 24HR [Suspect]
     Active Substance: TRIAMCINOLONE ACETONIDE
     Indication: NASAL CONGESTION
     Dosage: DOSE:2 UNIT(S)
     Route: 045
     Dates: end: 20170816
  3. NASACORT ALLERGY 24HR [Suspect]
     Active Substance: TRIAMCINOLONE ACETONIDE
     Indication: NASAL DISORDER
     Dosage: DOSE:2 UNIT(S)
     Route: 045
     Dates: end: 20170816
  4. NASACORT ALLERGY 24HR [Suspect]
     Active Substance: TRIAMCINOLONE ACETONIDE
     Indication: SINUS DISORDER
     Dosage: DOSE:2 UNIT(S)
     Route: 045
     Dates: end: 20170816

REACTIONS (2)
  - Condition aggravated [Unknown]
  - Pollakiuria [Unknown]
